FAERS Safety Report 5432988-4 (Version None)
Quarter: 2007Q3

REPORT INFORMATION
  Report Type: 
  Country: None (occurrence: None)
  Receive Date: 20070831
  Receipt Date: 20070817
  Transmission Date: 20080115
  Serious: Yes (Hospitalization)
  Sender: FDA-Public Use
  Company Number: PHBS2007IT13738

PATIENT
  Age: 56 Week
  Sex: Female

DRUGS (1)
  1. METHERGINE [Suspect]
     Indication: ACCIDENTAL EXPOSURE
     Dosage: 12 DRP, ONCE/SINGLE
     Route: 048
     Dates: start: 20070717, end: 20070717

REACTIONS (5)
  - ACCIDENTAL EXPOSURE [None]
  - ANOREXIA [None]
  - RESTLESSNESS [None]
  - SOMNOLENCE [None]
  - VOMITING [None]
